FAERS Safety Report 8370292-5 (Version None)
Quarter: 2012Q2

REPORT INFORMATION
  Report Type: 
  Country: None (occurrence: None)
  Receive Date: 20120518
  Receipt Date: 20110425
  Transmission Date: 20120825
  Serious: No
  Sender: FDA-Public Use
  Company Number: US-ASTRAZENECA-2011SE26873

PATIENT
  Sex: Male

DRUGS (1)
  1. PRILOSEC OTC [Suspect]
     Route: 048
     Dates: start: 20110417, end: 20110424

REACTIONS (3)
  - ABDOMINAL PAIN UPPER [None]
  - ABDOMINAL PAIN LOWER [None]
  - GASTROINTESTINAL INFLAMMATION [None]
